FAERS Safety Report 4388660-5 (Version None)
Quarter: 2004Q2

REPORT INFORMATION
  Report Type: 
  Country: None (occurrence: None)
  Receive Date: 20040624
  Receipt Date: 20040617
  Transmission Date: 20050107
  Serious: Yes (Hospitalization, Disabling)
  Sender: FDA-Public Use
  Company Number: 2004PK01062

PATIENT
  Age: 73 Year
  Sex: Female

DRUGS (8)
  1. ARIMIDEX [Suspect]
     Indication: BREAST CANCER
     Dosage: 1 MG  DAILY PO
     Route: 048
     Dates: start: 19981007, end: 20011017
  2. SELOKEN [Concomitant]
  3. NORVASC [Concomitant]
  4. EUTHYROX [Concomitant]
  5. PANTOLOC [Concomitant]
  6. BEZALIP [Concomitant]
  7. FLUCTINE [Concomitant]
  8. THROMBO ASS [Concomitant]

REACTIONS (4)
  - BACK PAIN [None]
  - OSTEOPOROSIS [None]
  - SPINAL COMPRESSION FRACTURE [None]
  - SPINAL FRACTURE [None]
